FAERS Safety Report 8128138-6 (Version None)
Quarter: 2011Q4

REPORT INFORMATION
  Report Type: 
  Country: None (occurrence: None)
  Receive Date: 20111228
  Receipt Date: 20110912
  Transmission Date: 20120403
  Serious: Yes (Other)
  Sender: FDA-Public Use
  Company Number: WAES 1109USA01041

PATIENT
  Age: 65 Year
  Sex: Female
  Weight: 56.246 kg

DRUGS (2)
  1. ZETIA [Suspect]
     Indication: BLOOD CHOLESTEROL ABNORMAL
     Dosage: PO
     Route: 048
     Dates: start: 20050101, end: 20080101
  2. ACETAMINOPHEN [Concomitant]

REACTIONS (2)
  - UNEVALUABLE EVENT [None]
  - ADVERSE DRUG REACTION [None]
